FAERS Safety Report 19690423 (Version 1)
Quarter: 2021Q3

REPORT INFORMATION
  Report Type: Report from Study
  Country: US (occurrence: US)
  Receive Date: 20210812
  Receipt Date: 20210812
  Transmission Date: 20211014
  Serious: Yes (Other)
  Sender: FDA-Public Use
  Company Number: US-IPSEN BIOPHARMACEUTICALS, INC.-2021-19657

PATIENT
  Age: 83 Year
  Sex: Male

DRUGS (1)
  1. SOMATULINE DEPOT [Suspect]
     Active Substance: LANREOTIDE ACETATE
     Indication: CARCINOID TUMOUR
     Route: 058
     Dates: start: 20210616, end: 20210616

REACTIONS (3)
  - Diarrhoea [Unknown]
  - International normalised ratio increased [Unknown]
  - Weight decreased [Unknown]

NARRATIVE: CASE EVENT DATE: 202106
